FAERS Safety Report 5472640-2 (Version None)
Quarter: 2007Q4

REPORT INFORMATION
  Report Type: 
  Country: None (occurrence: None)
  Receive Date: 20071001
  Receipt Date: 20060829
  Transmission Date: 20080405
  Serious: No
  Sender: FDA-Public Use
  Company Number: US-ASTRAZENECA-2006UW16326

PATIENT
  Age: 70 Year
  Sex: Female
  Weight: 71.7 kg

DRUGS (5)
  1. ARIMIDEX [Suspect]
     Indication: BREAST CANCER FEMALE
     Route: 048
     Dates: start: 20060101
  2. MULTIPLE MEDICATIONS FOR NERVE PROBLEM [Concomitant]
     Indication: NERVOUS SYSTEM DISORDER
  3. LYRICA [Concomitant]
  4. LEXAPRO [Concomitant]
  5. ATIVAN [Concomitant]

REACTIONS (4)
  - FEELING HOT [None]
  - FORMICATION [None]
  - PARAESTHESIA [None]
  - WEIGHT INCREASED [None]
